FAERS Safety Report 9285129 (Version 1)
Quarter: 2013Q2

REPORT INFORMATION
  Report Type: Spontaneous
  Country: CA (occurrence: None)
  Receive Date: 20130507
  Receipt Date: 20130507
  Transmission Date: 20140414
  Serious: Yes (Other)
  Sender: FDA-Public Use
  Company Number: 2013AP004829

PATIENT
  Sex: Male

DRUGS (1)
  1. APO-DORZO-TIMOP [Suspect]
     Route: 047

REACTIONS (2)
  - Blindness transient [None]
  - Product physical issue [None]
